FAERS Safety Report 6263864-5 (Version None)
Quarter: 2009Q3

REPORT INFORMATION
  Report Type: 
  Country: None (occurrence: None)
  Receive Date: 20090710
  Receipt Date: 20090609
  Transmission Date: 20100115
  Serious: No
  Sender: FDA-Public Use
  Company Number: US-BAYER-200916327NA

PATIENT
  Age: 57 Year
  Sex: Female

DRUGS (5)
  1. CLIMARA [Suspect]
     Indication: HORMONE REPLACEMENT THERAPY
     Dosage: APPLICATION SITES  ON BUTTOCK, AND ABDOMEN
     Route: 062
     Dates: start: 20060101
  2. FLEXERIL [Concomitant]
     Indication: FIBROMYALGIA
     Dosage: TOTAL DAILY DOSE: 20 MG
  3. KLONOPIN [Concomitant]
     Indication: SLEEP DISORDER
     Dosage: TOTAL DAILY DOSE: 2 MG
  4. CENTRUM SILVER FOR WOMEN [Concomitant]
     Indication: VITAMIN SUPPLEMENTATION
  5. BROMOCRYPTINE [Concomitant]
     Indication: HYPERHIDROSIS
     Dosage: TOTAL DAILY DOSE: 5 MG

REACTIONS (3)
  - DEVICE ADHESION ISSUE [None]
  - HYPERHIDROSIS [None]
  - MALAISE [None]
